FAERS Safety Report 6139991-X (Version None)
Quarter: 2009Q2

REPORT INFORMATION
  Report Type: 
  Country: None (occurrence: None)
  Receive Date: 20090401
  Receipt Date: 20090323
  Transmission Date: 20091009
  Serious: Yes (Congenital Anomaly)
  Sender: FDA-Public Use
  Company Number: DE-PFIZER INC-2008067177

PATIENT

DRUGS (3)
  1. CAMPTOSAR [Suspect]
     Dosage: 1 EVERY 14 DAYS
     Route: 050
     Dates: start: 20061201
  2. CETUXIMAB [Suspect]
     Dosage: 1 EVERY 14 DAYS
     Route: 050
     Dates: start: 20061201
  3. IRON PREPARATIONS [Concomitant]
     Route: 064

REACTIONS (2)
  - PATERNAL DRUGS AFFECTING FOETUS [None]
  - SKULL MALFORMATION [None]
